FAERS Safety Report 23097542 (Version 1)
Quarter: 2023Q4

REPORT INFORMATION
  Report Type: Spontaneous
  Country: US (occurrence: US)
  Receive Date: 20231023
  Receipt Date: 20231023
  Transmission Date: 20240110
  Serious: No
  Sender: FDA-Public Use
  Company Number: US-VIIV HEALTHCARE LIMITED-US2023141357

PATIENT

DRUGS (5)
  1. RUKOBIA [Suspect]
     Active Substance: FOSTEMSAVIR TROMETHAMINE
     Indication: Product used for unknown indication
     Dosage: UNK
  2. DOLUTEGRAVIR [Suspect]
     Active Substance: DOLUTEGRAVIR
     Indication: Product used for unknown indication
     Dosage: UNK UNK, BID
  3. DARUNAVIR [Suspect]
     Active Substance: DARUNAVIR
     Indication: Product used for unknown indication
     Dosage: UNK UNK, BID
  4. TENOFOVIR ALAFENAMIDE [Suspect]
     Active Substance: TENOFOVIR ALAFENAMIDE
     Indication: Product used for unknown indication
     Dosage: UNK UNK, BID
  5. IBALIZUMAB [Concomitant]
     Active Substance: IBALIZUMAB
     Indication: Product used for unknown indication
     Dosage: UNK

REACTIONS (2)
  - Viral load increased [Unknown]
  - Viraemia [Unknown]
